FAERS Safety Report 9661047 (Version 3)
Quarter: 2015Q2

REPORT INFORMATION
  Report Type: Report from Study
  Country: CN (occurrence: CN)
  Receive Date: 20131031
  Receipt Date: 20150513
  Transmission Date: 20150821
  Serious: Yes (Hospitalization, Other)
  Sender: FDA-Public Use
  Company Number: CN-GLAXOSMITHKLINE-B0936056A

PATIENT
  Age: 67 Year
  Sex: Male
  Weight: 68 kg

DRUGS (21)
  1. CLOPIDOGREL HYDROCHLORIDE [Concomitant]
     Active Substance: CLOPIDOGREL HYDROCHLORIDE
     Indication: PERCUTANEOUS CORONARY INTERVENTION
     Dosage: 75 MCG, OD
     Route: 048
  2. BETALOC [Concomitant]
     Active Substance: METOPROLOL TARTRATE
     Indication: HYPERTENSION
     Dosage: 12.5 MG, OD
     Route: 048
  3. VALSARTAN. [Concomitant]
     Active Substance: VALSARTAN
     Indication: HYPERTENSION
     Dosage: 1 TAB, OD
     Route: 048
  4. VALSARTAN. [Concomitant]
     Active Substance: VALSARTAN
     Dosage: 1 TAB, OD
     Route: 048
  5. FLUTAMIDE. [Concomitant]
     Active Substance: FLUTAMIDE
     Indication: PROSTATE CANCER
     Dosage: 3 TAB, TID
     Route: 048
     Dates: start: 2010
  6. FLUTAMIDE. [Concomitant]
     Active Substance: FLUTAMIDE
     Dosage: 3 CC, TID
     Route: 048
     Dates: start: 201009
  7. ZOLEDRONATE [Concomitant]
     Active Substance: ZOLEDRONIC ACID
     Indication: PROSTATE CANCER
     Dosage: 4 MG, QM
     Route: 042
     Dates: start: 2010
  8. GOSERELIN [Concomitant]
     Active Substance: GOSERELIN
     Indication: PROSTATE CANCER
     Dosage: 3.6 MG, QM
     Route: 058
     Dates: start: 2010
  9. BETALOC [Concomitant]
     Active Substance: METOPROLOL TARTRATE
     Dosage: 12.5 MG, OD
     Route: 048
  10. FLUVASTATIN SODIUM. [Concomitant]
     Active Substance: FLUVASTATIN SODIUM
     Indication: CORONARY ARTERY DISEASE
     Dosage: 1 TAB, OD
     Route: 048
  11. FLUVASTATIN SODIUM. [Concomitant]
     Active Substance: FLUVASTATIN SODIUM
     Indication: CORONARY ARTERY DISEASE
     Dosage: 1 TAB, OD
     Route: 048
  12. ZOLEDRONIC ACID [Concomitant]
     Active Substance: ZOLEDRONIC ACID
     Indication: PROSTATE CANCER
     Dosage: 4 MG, MONTHLY
     Route: 042
     Dates: start: 2010
  13. FLUTICASONE FUROATE [Suspect]
     Active Substance: FLUTICASONE FUROATE
     Indication: CHRONIC OBSTRUCTIVE PULMONARY DISEASE
     Dosage: 100 UG, QD
     Route: 055
     Dates: start: 20130605
  14. AMLODIPINE [Concomitant]
     Active Substance: AMLODIPINE BESYLATE
     Indication: HYPERTENSION
     Dosage: 5 MG, OD
     Route: 048
  15. AMLODIPINE [Concomitant]
     Active Substance: AMLODIPINE BESYLATE
     Dosage: 5 MG, OD
     Route: 048
  16. GOSERELIN [Concomitant]
     Active Substance: GOSERELIN
  17. ASPIRIN ENTERIC COATED [Concomitant]
     Active Substance: ASPIRIN
     Indication: PERCUTANEOUS CORONARY INTERVENTION
     Dosage: 0.1 G, OD
     Route: 048
  18. ASPIRIN ENTERIC COATED [Concomitant]
     Active Substance: ASPIRIN
     Dosage: 0.1 G, OD
     Route: 048
  19. ISOSORBIDE MONONITRATE. [Concomitant]
     Active Substance: ISOSORBIDE MONONITRATE
     Indication: CORONARY ARTERY DISEASE
     Dosage: 1 TAB, OD
     Route: 048
  20. ISOSORBIDE MONONITRATE. [Concomitant]
     Active Substance: ISOSORBIDE MONONITRATE
     Indication: CORONARY ARTERY DISEASE
     Dosage: 1 TAB, OD
     Route: 048
  21. FLUTAMIDE. [Concomitant]
     Active Substance: FLUTAMIDE
     Dosage: 3 CC, TID
     Route: 048
     Dates: start: 201009

REACTIONS (1)
  - Angina unstable [Recovered/Resolved]

NARRATIVE: CASE EVENT DATE: 20130724
